FAERS Safety Report 7026248-8 (Version None)
Quarter: 2010Q4

REPORT INFORMATION
  Report Type: 
  Country: None (occurrence: None)
  Receive Date: 20101004
  Receipt Date: 20100925
  Transmission Date: 20110411
  Serious: Yes (Hospitalization)
  Sender: FDA-Public Use
  Company Number: IT-JNJFOC-20100805702

PATIENT
  Sex: Female

DRUGS (1)
  1. RISPERDAL [Suspect]
     Indication: PRODUCT USED FOR UNKNOWN INDICATION
     Route: 048

REACTIONS (4)
  - ELECTROCARDIOGRAM QT PROLONGED [None]
  - SELF INJURIOUS BEHAVIOUR [None]
  - SOPOR [None]
  - TACHYCARDIA [None]
